FAERS Safety Report 5364169-7 (Version None)
Quarter: 2007Q2

REPORT INFORMATION
  Report Type: 
  Country: None (occurrence: None)
  Receive Date: 20070620
  Receipt Date: 20070614
  Transmission Date: 20071010
  Serious: Yes (Other)
  Sender: FDA-Public Use
  Company Number: ES-GENENTECH-243019

PATIENT
  Sex: Male
  Weight: 75 kg

DRUGS (4)
  1. RITUXIMAB [Suspect]
     Indication: B-CELL LYMPHOMA
     Dosage: 652 MG, QD
     Route: 042
     Dates: start: 20060316, end: 20070606
  2. PARACETAMOL [Concomitant]
     Indication: PROPHYLAXIS
     Dosage: 500 MG, Q8H
  3. SEPTRA [Concomitant]
     Indication: PROPHYLAXIS
     Dosage: 375 MG, UNK
  4. OMEPRAZOLE [Concomitant]
     Indication: PROPHYLAXIS

REACTIONS (1)
  - HEPATITIS [None]
